FAERS Safety Report 20611321 (Version 1)
Quarter: 2022Q1

REPORT INFORMATION
  Report Type: Spontaneous
  Country: CA (occurrence: CA)
  Receive Date: 20220318
  Receipt Date: 20220318
  Transmission Date: 20220424
  Serious: Yes (Other)
  Sender: FDA-Public Use
  Company Number: CA-PFIZER INC-202101205097

PATIENT
  Age: 43 Year
  Sex: Female
  Weight: 76 kg

DRUGS (2)
  1. METHOTREXATE SODIUM [Suspect]
     Active Substance: METHOTREXATE SODIUM
     Dosage: 20 MG, WEEKLY (MORE THAN 3 MONTHS)
  2. SULFASALAZINE [Suspect]
     Active Substance: SULFASALAZINE
     Dosage: 1 G, 2X/DAY (MORE THAN 3 MONTHS)
     Route: 065

REACTIONS (5)
  - Pain in jaw [Unknown]
  - Drug ineffective [Unknown]
  - COVID-19 [Unknown]
  - Nerve injury [Unknown]
  - Inflammation [Unknown]

NARRATIVE: CASE EVENT DATE: 20220117
